FAERS Safety Report 6718324-1 (Version None)
Quarter: 2010Q2

REPORT INFORMATION
  Report Type: 
  Country: None (occurrence: None)
  Receive Date: 20100505
  Receipt Date: 20100421
  Transmission Date: 20101027
  Serious: Yes (Other)
  Sender: FDA-Public Use
  Company Number: PD 134

PATIENT

DRUGS (1)
  1. LEVETIRACETAM [Suspect]
     Indication: EPILEPSY
     Dosage: 250 OR 500 MG 2X DAILYUP TO 3000-4000 MG DAILY

REACTIONS (3)
  - DIARRHOEA [None]
  - HALLUCINATION, VISUAL [None]
  - PSYCHOTIC DISORDER [None]
